FAERS Safety Report 7519713-8 (Version None)
Quarter: 2011Q2

REPORT INFORMATION
  Report Type: 
  Country: None (occurrence: None)
  Receive Date: 20110524
  Receipt Date: 20110509
  Transmission Date: 20111010
  Serious: Yes (Other)
  Sender: FDA-Public Use
  Company Number: 1000020864

PATIENT
  Age: 58 Year
  Sex: Female
  Weight: 92.7 kg

DRUGS (14)
  1. CORANGIN (CORANGIN) (CORANGIN) [Concomitant]
  2. ASS (ACETYLSALICYLIC ACID) (ACETYLSALICYLIC ACID) [Concomitant]
  3. INSPRA (INSPRA) (INSPRA) [Concomitant]
  4. ACC (ACETYLCYSTEINE) (ACETYLCYSTEINE) [Concomitant]
  5. SIMVASTATIN/EZETIMIBE (SIMVASTATIN/EZETIMIBE) (SIMVASTATIN/EZETIMIBE) [Concomitant]
  6. NEBILET (NEBIVOLOL HYDROCHLORIDE) (NEBIVOLOL HYDROCHLORIDE) [Concomitant]
  7. INEGY (INEGY) (INEGY) [Concomitant]
  8. PANTOZOL (PANTOZOL) (PANTOZOL) [Concomitant]
  9. FUROSEMIDE [Concomitant]
  10. SPIRIVIA (TIOTROPIUM BROMIDE) (TIOTROPIUM BROMIDE) [Concomitant]
  11. ALLOPURINOL [Concomitant]
  12. ROFLUMILAST (ROFLUMILAST) (TABLETS) [Suspect]
     Indication: CHRONIC OBSTRUCTIVE PULMONARY DISEASE
     Dosage: 500 MCG (500 MCG, DAILY)
     Dates: start: 20110321, end: 20110323
  13. RAMIPRIL [Concomitant]
  14. SYMBICORT (BUDESONIDE/FORMOTEROL FUMARATE) (BUDESONIDE/FORMOTEROL FUMA [Concomitant]

REACTIONS (2)
  - DYSPNOEA [None]
  - CHEST DISCOMFORT [None]
